FAERS Safety Report 10023180 (Version 3)
Quarter: 2014Q2

REPORT INFORMATION
  Report Type: Report from Study
  Country: US (occurrence: US)
  Receive Date: 20140320
  Receipt Date: 20140521
  Transmission Date: 20141212
  Serious: Yes (Other)
  Sender: FDA-Public Use
  Company Number: US-ROCHE-1306242

PATIENT
  Age: 66 Year
  Sex: Male
  Weight: 50.39 kg

DRUGS (9)
  1. ZELBORAF [Suspect]
     Indication: MALIGNANT MELANOMA
     Route: 048
     Dates: start: 20130912, end: 20130919
  2. ZELBORAF [Suspect]
     Indication: SKIN CANCER
     Route: 048
     Dates: start: 20131010, end: 20131211
  3. ZELBORAF [Suspect]
     Indication: NEOPLASM MALIGNANT
     Route: 048
     Dates: start: 20131212, end: 20140308
  4. ZELBORAF [Suspect]
     Route: 048
     Dates: start: 20140306
  5. ALLOPURINOL [Concomitant]
  6. ALPRAZOLAM [Concomitant]
  7. RANITIDINE [Concomitant]
  8. TRAMADOL [Concomitant]
  9. PROCHLORPERAZINE [Concomitant]

REACTIONS (3)
  - Rash [Recovered/Resolved]
  - Brain neoplasm malignant [Unknown]
  - Disease progression [Unknown]
